FAERS Safety Report 16850701 (Version 1)
Quarter: 2019Q3

REPORT INFORMATION
  Report Type: Spontaneous
  Country: US (occurrence: US)
  Receive Date: 20190925
  Receipt Date: 20190925
  Transmission Date: 20191005
  Serious: No
  Sender: FDA-Public Use
  Company Number: US-THERAPEUTICSMD-2019TMD02747

PATIENT
  Sex: Female
  Weight: 63.49 kg

DRUGS (5)
  1. IMVEXXY [Suspect]
     Active Substance: ESTRADIOL
     Indication: INCONTINENCE
     Dosage: 10 ?G, 2X/WEEK SUNDAY AND THURSDAY
     Route: 067
     Dates: start: 2018, end: 2019
  2. IMVEXXY [Suspect]
     Active Substance: ESTRADIOL
     Dosage: 10 ?G, 2X/WEEK SUNDAY AND THURSDAY
     Dates: start: 201906
  3. UNSPECIFIED THYROID MEDICATION [Concomitant]
     Active Substance: UNSPECIFIED INGREDIENT
     Dosage: 1.5 G, 5X/WEEK
  4. UNSPECIFIED THYROID MEDICATION [Concomitant]
     Active Substance: UNSPECIFIED INGREDIENT
     Dosage: 0.5 TABLETS, 2X/WEEK (THURSDAY AND SUNDAY)
  5. UNSPECIFIED SUPPLEMENTS [Concomitant]

REACTIONS (4)
  - Off label use [Not Recovered/Not Resolved]
  - Vaginal discharge [Not Recovered/Not Resolved]
  - Scratch [Unknown]
  - Vulvovaginal dryness [Not Recovered/Not Resolved]

NARRATIVE: CASE EVENT DATE: 2018
